FAERS Safety Report 11588658 (Version 2)
Quarter: 2015Q4

REPORT INFORMATION
  Report Type: Spontaneous
  Country: GB (occurrence: GB)
  Receive Date: 20151002
  Receipt Date: 20151119
  Transmission Date: 20160304
  Serious: Yes (Other)
  Sender: FDA-Public Use
  Company Number: GB-AMGEN-GBRSP2015101498

PATIENT
  Age: 25 Year
  Sex: Male

DRUGS (1)
  1. ENBREL [Suspect]
     Active Substance: ETANERCEPT
     Indication: ANKYLOSING SPONDYLITIS
     Dosage: 50 MG, WEEKLY
     Route: 065
     Dates: start: 20150729

REACTIONS (2)
  - Pain in extremity [Unknown]
  - Haematochezia [Unknown]

NARRATIVE: CASE EVENT DATE: 2015
